FAERS Safety Report 12812782 (Version 1)
Quarter: 2016Q4

REPORT INFORMATION
  Report Type: Spontaneous
  Country: US (occurrence: US)
  Receive Date: 20161005
  Receipt Date: 20161005
  Transmission Date: 20170207
  Serious: No
  Sender: FDA-Public Use
  Company Number: US-009507513-1609USA010814

PATIENT
  Sex: Male
  Weight: 72.57 kg

DRUGS (1)
  1. ZOCOR [Suspect]
     Active Substance: SIMVASTATIN
     Indication: BLOOD CHOLESTEROL
     Dosage: 80 MG, CUT IN HALF FOR 40 MG ONCE A DAY (QD)
     Route: 048

REACTIONS (2)
  - Wrong technique in product usage process [Unknown]
  - Drug effect delayed [Unknown]
